FAERS Safety Report 5015259-X (Version None)
Quarter: 2006Q2

REPORT INFORMATION
  Report Type: 
  Country: None (occurrence: None)
  Receive Date: 20060530
  Receipt Date: 20060517
  Transmission Date: 20061013
  Serious: Yes (Other)
  Sender: FDA-Public Use
  Company Number: 2006066199

PATIENT
  Age: 14 Year
  Sex: Male

DRUGS (3)
  1. GEODON [Suspect]
     Indication: ILL-DEFINED DISORDER
     Dates: start: 20050101, end: 20060101
  2. DEPAKOTE [Suspect]
     Indication: ILL-DEFINED DISORDER
  3. STRATTERA [Concomitant]

REACTIONS (2)
  - TARDIVE DYSKINESIA [None]
  - WHITE BLOOD CELL COUNT ABNORMAL [None]
